FAERS Safety Report 16549070 (Version 1)
Quarter: 2019Q3

REPORT INFORMATION
  Report Type: Spontaneous
  Country: GB (occurrence: GB)
  Receive Date: 20190709
  Receipt Date: 20190709
  Transmission Date: 20191004
  Serious: Yes (Hospitalization)
  Sender: FDA-Public Use
  Company Number: GB-009507513-1907GBR003608

PATIENT
  Sex: Female

DRUGS (1)
  1. SINEMET PLUS 25 MG/100 MG TABLETS [Suspect]
     Active Substance: CARBIDOPA\LEVODOPA
     Dosage: OVAL COATED TABLET
     Route: 048

REACTIONS (2)
  - Incorrect product formulation administered [Unknown]
  - Allergic reaction to excipient [Unknown]
